FAERS Safety Report 6130989-4 (Version None)
Quarter: 2009Q1

REPORT INFORMATION
  Report Type: 
  Country: None (occurrence: None)
  Receive Date: 20090325
  Receipt Date: 20090310
  Transmission Date: 20090719
  Serious: Yes (Death)
  Sender: FDA-Public Use
  Company Number: FR-PFIZER INC-2008001532

PATIENT

DRUGS (7)
  1. LYRICA [Suspect]
  2. LYSANXIA [Suspect]
     Route: 048
  3. IZILOX [Suspect]
     Route: 048
     Dates: start: 20071203, end: 20071205
  4. ADVIL [Suspect]
     Route: 048
     Dates: start: 20071203, end: 20071205
  5. DOLIPRANE [Suspect]
     Route: 048
     Dates: start: 20071203, end: 20071205
  6. DEROXAT [Suspect]
  7. LAROXYL [Concomitant]

REACTIONS (1)
  - SUDDEN DEATH [None]
